FAERS Safety Report 15109635 (Version 1)
Quarter: 2018Q3

REPORT INFORMATION
  Report Type: Spontaneous
  Country: US (occurrence: US)
  Receive Date: 20180705
  Receipt Date: 20180705
  Transmission Date: 20181010
  Serious: No
  Sender: FDA-Public Use
  Company Number: US-GLAXOSMITHKLINE-US2018GSK114705

PATIENT
  Sex: Female

DRUGS (2)
  1. INCRUSE ELLIPTA [Suspect]
     Active Substance: UMECLIDINIUM BROMIDE
     Indication: ASTHMA
     Route: 055
  2. BREO ELLIPTA [Suspect]
     Active Substance: FLUTICASONE FUROATE\VILANTEROL TRIFENATATE
     Indication: ASTHMA
     Route: 055

REACTIONS (1)
  - Dyspnoea [Unknown]
